FAERS Safety Report 4840605-7 (Version None)
Quarter: 2005Q4

REPORT INFORMATION
  Report Type: 
  Country: None (occurrence: None)
  Receive Date: 20051123
  Receipt Date: 20051110
  Transmission Date: 20060501
  Serious: Yes (Hospitalization)
  Sender: FDA-Public Use
  Company Number: 200510689BFR

PATIENT
  Age: 76 Year
  Sex: Female

DRUGS (7)
  1. CIPROFLOXACIN [Suspect]
     Dates: start: 20050602, end: 20050607
  2. ROCEPHIN [Suspect]
     Indication: PYELONEPHRITIS
     Dates: start: 20050530, end: 20050607
  3. VASTAREL [Concomitant]
  4. KARDEGIC [Concomitant]
  5. BISOPROLOL [Concomitant]
  6. FLUDEX [Concomitant]
  7. LASILIX [Concomitant]

REACTIONS (6)
  - BLOOD PRESSURE DIASTOLIC DECREASED [None]
  - DEHYDRATION [None]
  - DRUG ERUPTION [None]
  - GLOMERULONEPHRITIS PROLIFERATIVE [None]
  - NEPHRITIS INTERSTITIAL [None]
  - RENAL FAILURE [None]
